FAERS Safety Report 24450089 (Version 1)
Quarter: 2024Q4

REPORT INFORMATION
  Report Type: Spontaneous
  Country: US (occurrence: US)
  Receive Date: 20241017
  Receipt Date: 20241017
  Transmission Date: 20250114
  Serious: Yes (Hospitalization, Other)
  Sender: APOTEX
  Company Number: US-APOTEX-2024AP011978

PATIENT
  Age: 76 Year
  Sex: Female

DRUGS (2)
  1. TRAMADOL [Suspect]
     Active Substance: TRAMADOL
     Indication: Product used for unknown indication
     Dosage: UNK
     Route: 065
  2. BACLOFEN [Suspect]
     Active Substance: BACLOFEN
     Indication: Product used for unknown indication
     Dosage: UNK
     Route: 065

REACTIONS (9)
  - Pulseless electrical activity [Unknown]
  - Unresponsive to stimuli [Unknown]
  - Status epilepticus [Recovering/Resolving]
  - Areflexia [Unknown]
  - Pupil fixed [Unknown]
  - Cognitive disorder [Recovering/Resolving]
  - Somatosensory evoked potentials abnormal [Recovered/Resolved]
  - Overdose [Unknown]
  - Seizure [Recovering/Resolving]
